FAERS Safety Report 10441635 (Version 3)
Quarter: 2014Q3

REPORT INFORMATION
  Report Type: Spontaneous
  Country: CH (occurrence: CH)
  Receive Date: 20140909
  Receipt Date: 20140930
  Transmission Date: 20150326
  Serious: Yes (Hospitalization, Other)
  Sender: FDA-Public Use
  Company Number: CH-B.I. PHARMACEUTICALS,INC./RIDGEFIELD-2014-BI-41063SI

PATIENT
  Age: 83 Year
  Sex: Female

DRUGS (8)
  1. INHIBACE PLUS [Concomitant]
     Indication: PRODUCT USED FOR UNKNOWN INDICATION
     Route: 065
  2. BELOC-ZOC-COMP [Concomitant]
     Indication: PRODUCT USED FOR UNKNOWN INDICATION
     Route: 065
  3. AKINETON [Concomitant]
     Active Substance: BIPERIDEN HYDROCHLORIDE
     Indication: PRODUCT USED FOR UNKNOWN INDICATION
     Route: 065
  4. ANAFRANIL [Concomitant]
     Active Substance: CLOMIPRAMINE HYDROCHLORIDE
     Indication: PRODUCT USED FOR UNKNOWN INDICATION
     Route: 065
  5. COMILORID [Concomitant]
     Active Substance: HYDROCHLOROTHIAZIDE
     Indication: PRODUCT USED FOR UNKNOWN INDICATION
     Route: 065
  6. PANTOZOL [Concomitant]
     Active Substance: PANTOPRAZOLE SODIUM
     Indication: PRODUCT USED FOR UNKNOWN INDICATION
     Route: 065
  7. FLURAZEPAM [Concomitant]
     Active Substance: FLURAZEPAM\FLURAZEPAM HYDROCHLORIDE
     Indication: PRODUCT USED FOR UNKNOWN INDICATION
     Route: 065
  8. PRADAXA [Suspect]
     Active Substance: DABIGATRAN ETEXILATE MESYLATE
     Indication: ATRIAL FLUTTER
     Dosage: 220 MG
     Route: 048
     Dates: start: 201405, end: 20140729

REACTIONS (15)
  - Melaena [Unknown]
  - Renal failure acute [Unknown]
  - Toxicity to various agents [Unknown]
  - International normalised ratio increased [Recovered/Resolved]
  - Renal failure [Not Recovered/Not Resolved]
  - Gastrointestinal haemorrhage [Unknown]
  - Vomiting [Unknown]
  - Haemorrhagic anaemia [Not Recovered/Not Resolved]
  - Anticoagulation drug level above therapeutic [Unknown]
  - Blood pressure decreased [Recovered/Resolved]
  - Intestinal haemorrhage [Not Recovered/Not Resolved]
  - Renal failure chronic [Unknown]
  - Diarrhoea [Unknown]
  - Haematochezia [Not Recovered/Not Resolved]
  - Abdominal pain upper [Unknown]

NARRATIVE: CASE EVENT DATE: 20140723
